FAERS Safety Report 8196115-5 (Version None)
Quarter: 2012Q1

REPORT INFORMATION
  Report Type: 
  Country: None (occurrence: None)
  Receive Date: 20120223
  Receipt Date: 20110919
  Transmission Date: 20120608
  Serious: Yes (Disabling)
  Sender: FDA-Public Use
  Company Number: WAES 1109USA01901

PATIENT
  Age: 62 Year
  Sex: Male
  Weight: 84.8226 kg

DRUGS (9)
  1. ZOCOR [Suspect]
     Indication: BLOOD CHOLESTEROL INCREASED
     Dosage: 20 MG/DAILY/PO
     Route: 048
     Dates: start: 20100818, end: 20110713
  2. ZOCOR [Suspect]
     Indication: HYPERLIPIDAEMIA
     Dosage: 20 MG/DAILY/PO
     Route: 048
     Dates: start: 20100818, end: 20110713
  3. BYSTOLIC [Concomitant]
  4. UBIDECARENONE [Concomitant]
  5. ASPIRIN [Concomitant]
  6. BENICAR [Concomitant]
  7. LEVOTHYROXINE SODIUM [Concomitant]
  8. LYRICA [Concomitant]
  9. XANAX [Concomitant]

REACTIONS (2)
  - RHABDOMYOLYSIS [None]
  - BURNING SENSATION [None]
